FAERS Safety Report 17313981 (Version 1)
Quarter: 2020Q1

REPORT INFORMATION
  Report Type: Spontaneous
  Country: US (occurrence: US)
  Receive Date: 20200107
  Receipt Date: 20200107
  Transmission Date: 20200409
  Serious: Yes (Death)
  Sender: FDA-Public Use
  Company Number: None

PATIENT
  Age: 66 Year
  Sex: Female

DRUGS (11)
  1. MELATONIN [Concomitant]
     Active Substance: MELATONIN
  2. MULTIVITAMIN ADLT 50+ [Concomitant]
  3. OMEGA-3 ACIDS [Concomitant]
     Active Substance: OMEGA-3 FATTY ACIDS
  4. VERZENIO [Suspect]
     Active Substance: ABEMACICLIB
     Indication: BREAST CANCER
     Route: 048
     Dates: start: 20191217, end: 20200107
  5. IBUPROFEN. [Concomitant]
     Active Substance: IBUPROFEN
  6. HALAVEN [Concomitant]
     Active Substance: ERIBULIN MESYLATE
  7. VERZENIO [Suspect]
     Active Substance: ABEMACICLIB
     Indication: BREAST CANCER
     Route: 048
     Dates: start: 20191217, end: 20200107
  8. IPRATROPIUM [Concomitant]
     Active Substance: IPRATROPIUM
  9. LUNESTA [Concomitant]
     Active Substance: ESZOPICLONE
  10. RESTASIS [Concomitant]
     Active Substance: CYCLOSPORINE
  11. ZOMETA [Concomitant]
     Active Substance: ZOLEDRONIC ACID

REACTIONS (1)
  - Death [None]

NARRATIVE: CASE EVENT DATE: 20200107
